FAERS Safety Report 8462037-5 (Version None)
Quarter: 2012Q2

REPORT INFORMATION
  Report Type: 
  Country: None (occurrence: None)
  Receive Date: 20120618
  Receipt Date: 20120612
  Transmission Date: 20120825
  Serious: Yes (Other)
  Sender: FDA-Public Use
  Company Number: AUR-APL-2012-02620

PATIENT
  Age: 63 Year
  Sex: Female

DRUGS (5)
  1. OMEPRAZOLE [Concomitant]
  2. AMLODIPINE [Suspect]
     Indication: HYPERTENSION
     Dosage: 5 MG (5 MG, 1 IN 1 D,),ORAL
     Route: 048
  3. ASPIRIN (ACETYLSALICYLIC AICD0 [Concomitant]
  4. LEVOTHYROXINE SODIUM [Concomitant]
  5. AMLODIPINE [Suspect]

REACTIONS (4)
  - DIARRHOEA [None]
  - MOUTH ULCERATION [None]
  - WEIGHT DECREASED [None]
  - MALAISE [None]
